FAERS Safety Report 6994024-8 (Version None)
Quarter: 2010Q3

REPORT INFORMATION
  Report Type: 
  Country: None (occurrence: None)
  Receive Date: 20100917
  Receipt Date: 20100708
  Transmission Date: 20110219
  Serious: No
  Sender: FDA-Public Use
  Company Number: US-ASTRAZENECA-2010SE27723

PATIENT
  Age: 34 Year
  Sex: Female

DRUGS (2)
  1. SEROQUEL XR [Suspect]
     Route: 048
     Dates: start: 20100401, end: 20100501
  2. SEROQUEL XR [Suspect]
     Route: 048
     Dates: start: 20100501

REACTIONS (4)
  - CHOLELITHIASIS [None]
  - GALLBLADDER DISORDER [None]
  - INSOMNIA [None]
  - OVARIAN MASS [None]
